FAERS Safety Report 4528526-0 (Version None)
Quarter: 2004Q4

REPORT INFORMATION
  Report Type: 
  Country: None (occurrence: None)
  Receive Date: 20041216
  Receipt Date: 20040713
  Transmission Date: 20050328
  Serious: No
  Sender: FDA-Public Use
  Company Number: US-BRISTOL-MYERS SQUIBB COMPANY-12639415

PATIENT
  Age: 65 Year
  Sex: Female
  Weight: 78 kg

DRUGS (4)
  1. QUESTRAN [Suspect]
     Indication: IRRITABLE BOWEL SYNDROME
     Dosage: 1 SCOOP/DAY = DOSE
     Route: 048
  2. PROZAC [Concomitant]
  3. NEXIUM [Concomitant]
  4. BEXTRA [Concomitant]

REACTIONS (1)
  - HEPATIC STEATOSIS [None]
